FAERS Safety Report 8223937-4 (Version None)
Quarter: 2012Q1

REPORT INFORMATION
  Report Type: 
  Country: None (occurrence: None)
  Receive Date: 20120321
  Receipt Date: 20120312
  Transmission Date: 20120608
  Serious: Yes (Death, Hospitalization)
  Sender: FDA-Public Use
  Company Number: SV-PFIZER INC-2012070839

PATIENT
  Age: 76 Year
  Sex: Male

DRUGS (1)
  1. PANTOPRAZOLE [Suspect]
     Indication: INTESTINAL HAEMORRHAGE
     Dosage: 40 MG, UNK
     Route: 042

REACTIONS (1)
  - DEATH [None]
